FAERS Safety Report 22204571 (Version 2)
Quarter: 2023Q2

REPORT INFORMATION
  Report Type: Spontaneous
  Country: GB (occurrence: GB)
  Receive Date: 20230413
  Receipt Date: 20230417
  Transmission Date: 20230722
  Serious: Yes (Other)
  Sender: FDA-Public Use
  Company Number: GB-KOREA IPSEN Pharma-2023-08386

PATIENT
  Age: 46 Year
  Sex: Female

DRUGS (3)
  1. BOTULINUM TOXIN TYPE A [Suspect]
     Active Substance: BOTULINUM TOXIN TYPE A
     Indication: Myopia
     Route: 065
  2. BOTULINUM TOXIN TYPE A [Suspect]
     Active Substance: BOTULINUM TOXIN TYPE A
     Indication: Extraocular muscle disorder
  3. BOTULINUM TOXIN TYPE A [Suspect]
     Active Substance: BOTULINUM TOXIN TYPE A
     Indication: Off label use

REACTIONS (2)
  - Open globe injury [Unknown]
  - Product use in unapproved indication [Unknown]
